FAERS Safety Report 6526192-6 (Version None)
Quarter: 2009Q4

REPORT INFORMATION
  Report Type: 
  Country: None (occurrence: None)
  Receive Date: 20091228
  Receipt Date: 20091217
  Transmission Date: 20100525
  Serious: Yes (Other)
  Sender: FDA-Public Use
  Company Number: 237276K06USA

PATIENT
  Age: 65 Year
  Sex: Female

DRUGS (7)
  1. REBIF [Suspect]
     Indication: MULTIPLE SCLEROSIS
     Dosage: 44 MCG, 3 IN 1 WEEKS, SUBCUTANEOUS
     Route: 058
     Dates: start: 20030820, end: 20080801
  2. SETROIDS (CORTICOSTEROID NOS) [Concomitant]
  3. ATENOLOL [Concomitant]
  4. NORVASC [Concomitant]
  5. VESICARE [Concomitant]
  6. EFFEXOR [Concomitant]
  7. XANAX [Concomitant]

REACTIONS (8)
  - CATARACT [None]
  - DEPRESSION [None]
  - METASTASES TO GASTROINTESTINAL TRACT [None]
  - METASTASES TO LUNG [None]
  - OVARIAN CANCER [None]
  - OVARIAN CANCER RECURRENT [None]
  - PELVIC FLUID COLLECTION [None]
  - URINARY TRACT DISORDER [None]
